FAERS Safety Report 6742594-7 (Version None)
Quarter: 2010Q2

REPORT INFORMATION
  Report Type: 
  Country: None (occurrence: None)
  Receive Date: 20100524
  Receipt Date: 20100415
  Transmission Date: 20101027
  Serious: No
  Sender: FDA-Public Use
  Company Number: ACO_00708_2010

PATIENT
  Sex: Female
  Weight: 71.6683 kg

DRUGS (12)
  1. AMPYRA [Suspect]
     Indication: MULTIPLE SCLEROSIS
     Dosage: (10 MG BID ORAL)
     Route: 048
     Dates: start: 20100326, end: 20100329
  2. AMPYRA [Suspect]
     Indication: MULTIPLE SCLEROSIS
     Dosage: (10 MG QD ORAL) ; (10 MG BID ORAL)
     Route: 048
     Dates: start: 20100329, end: 20100401
  3. AMPYRA [Suspect]
     Indication: MULTIPLE SCLEROSIS
     Dosage: (10 MG QD ORAL) ; (10 MG BID ORAL)
     Route: 048
     Dates: start: 20100401
  4. COPAXONE [Concomitant]
  5. NORTRIPTYLINE HCL [Concomitant]
  6. LYRICA [Concomitant]
  7. DETROL LA [Concomitant]
  8. ASACOL [Concomitant]
  9. BACLOFEN [Concomitant]
  10. NALTREXONE HYDROCHLORIDE [Concomitant]
  11. RITALIN [Concomitant]
  12. METHYLPHENIDATE HCL [Concomitant]

REACTIONS (4)
  - BURNING SENSATION [None]
  - HYPERSENSITIVITY [None]
  - INAPPROPRIATE SCHEDULE OF DRUG ADMINISTRATION [None]
  - URTICARIA [None]
